FAERS Safety Report 4450463-0 (Version None)
Quarter: 2004Q3

REPORT INFORMATION
  Report Type: 
  Country: None (occurrence: None)
  Receive Date: 20040915
  Receipt Date: 20040827
  Transmission Date: 20050211
  Serious: Yes (Hospitalization)
  Sender: FDA-Public Use
  Company Number: DSA_24298_2004

PATIENT
  Age: 80 Year
  Sex: Female

DRUGS (6)
  1. DILTIAZEM HCL [Suspect]
     Dosage: 300 MG Q DAY PO
     Route: 048
  2. LASIX [Concomitant]
  3. SINTROM [Concomitant]
  4. ACETAMINOPHEN [Concomitant]
  5. XANAX [Concomitant]
  6. ZESTRIL [Concomitant]

REACTIONS (2)
  - BRADYCARDIA [None]
  - SYNCOPE VASOVAGAL [None]
